FAERS Safety Report 10378013 (Version 2)
Quarter: 2014Q3

REPORT INFORMATION
  Report Type: Spontaneous
  Country: BR (occurrence: None)
  Receive Date: 20140807
  Receipt Date: 20140814
  Transmission Date: 20150326
  Serious: Yes (Hospitalization, Other)
  Sender: FDA-Public Use
  Company Number: AUR-APL-2014-08354

PATIENT
  Age: 72 Year
  Sex: Male
  Weight: 52 kg

DRUGS (24)
  1. PANTOPRAZOLE [Suspect]
     Active Substance: PANTOPRAZOLE SODIUM
     Indication: RENAL FAILURE CHRONIC
     Dosage: 1 DF (40 MG)
     Route: 048
     Dates: start: 2011
  2. DIOVAN [Suspect]
     Active Substance: VALSARTAN
     Indication: HYPERTENSION
     Dosage: 2 DF (160 MG)
     Route: 048
     Dates: start: 2011
  3. DIOVAN AMLO FIX [Suspect]
     Active Substance: AMLODIPINE\VALSARTAN
     Indication: RENAL FAILURE CHRONIC
     Dosage: 1 DF (320/10 MG)
     Route: 048
     Dates: end: 2011
  4. SINGULAIR [Suspect]
     Active Substance: MONTELUKAST SODIUM
     Indication: RENAL FAILURE CHRONIC
     Dosage: 1 DF (10 MG)
     Route: 048
  5. AMLODIPINE [Suspect]
     Active Substance: AMLODIPINE BESYLATE
     Indication: RENAL FAILURE CHRONIC
     Dosage: 2 DF (10 MG)
     Route: 048
     Dates: start: 2011
  6. DOMPERIDONE [Suspect]
     Active Substance: DOMPERIDONE
     Indication: RENAL FAILURE CHRONIC
     Dosage: 2 DF (10 MG)
     Route: 048
     Dates: start: 2011
  7. SPIRIVA [Suspect]
     Active Substance: TIOTROPIUM BROMIDE MONOHYDRATE
     Indication: CHRONIC OBSTRUCTIVE PULMONARY DISEASE
     Dosage: RESPIRATORY
     Route: 055
  8. ENALAPRIL [Suspect]
     Active Substance: ENALAPRIL
     Indication: PRODUCT USED FOR UNKNOWN INDICATION
     Dosage: 2 DF (10 MG)
  9. APRESOLIN [Suspect]
     Active Substance: HYDRALAZINE HYDROCHLORIDE
     Indication: HYPERTENSION
     Dosage: 0.5 DF (50 MG)
     Route: 048
     Dates: start: 2011
  10. APRESOLIN [Suspect]
     Active Substance: HYDRALAZINE HYDROCHLORIDE
     Indication: RENAL FAILURE CHRONIC
     Dosage: 0.5 DF (50 MG)
     Route: 048
     Dates: start: 2011
  11. DOMPERIDONE [Suspect]
     Active Substance: DOMPERIDONE
     Indication: HYPERTENSION
     Dosage: 2 DF (10 MG)
     Route: 048
     Dates: start: 2011
  12. AMLODIPINE [Suspect]
     Active Substance: AMLODIPINE BESYLATE
     Indication: HYPERTENSION
     Dosage: 2 DF (10 MG)
     Route: 048
     Dates: start: 2011
  13. PANTOPRAZOLE [Suspect]
     Active Substance: PANTOPRAZOLE SODIUM
     Indication: HYPERTENSION
     Dosage: 1 DF (40 MG)
     Route: 048
     Dates: start: 2011
  14. DIOVAN AMLO FIX [Suspect]
     Active Substance: AMLODIPINE\VALSARTAN
     Indication: HYPERTENSION
     Dosage: 1 DF (320/10 MG)
     Route: 048
     Dates: end: 2011
  15. DIOVAN [Suspect]
     Active Substance: VALSARTAN
     Indication: RENAL FAILURE CHRONIC
     Dosage: 2 DF (160 MG)
     Route: 048
     Dates: start: 2011
  16. FOLIC ACID. [Suspect]
     Active Substance: FOLIC ACID
     Indication: RENAL FAILURE CHRONIC
     Dosage: 1 DF (10 MG)
     Route: 048
     Dates: start: 2011
  17. DAXAS [Suspect]
     Active Substance: ROFLUMILAST
     Indication: HYPERTENSION
     Route: 048
     Dates: start: 2011
  18. SINGULAIR [Suspect]
     Active Substance: MONTELUKAST SODIUM
     Indication: HYPERTENSION
     Dosage: 1 DF (10 MG)
     Route: 048
  19. ONBREZ [Suspect]
     Active Substance: INDACATEROL
     Indication: CHRONIC OBSTRUCTIVE PULMONARY DISEASE
     Dosage: 1 DF (150 MCG), RESPIRATORY
     Route: 055
     Dates: start: 2011
  20. FOLIC ACID. [Suspect]
     Active Substance: FOLIC ACID
     Indication: HYPERTENSION
     Dosage: 1 DF (10 MG)
     Route: 048
     Dates: start: 2011
  21. DAXAS [Suspect]
     Active Substance: ROFLUMILAST
     Indication: RENAL FAILURE CHRONIC
     Route: 048
     Dates: start: 2011
  22. COMPLEX B [Suspect]
     Active Substance: CALCIUM PANTOTHENATE\CYANOCOBALAMIN\NIACINAMIDE\PYRIDOXINE HYDROCHLORIDE\RIBOFLAVIN\THIAMINE MONONITRATE
     Indication: HYPERTENSION
     Dosage: 3 DF (10 MG)
     Route: 048
     Dates: start: 2011
  23. COMPLEX B [Suspect]
     Active Substance: CALCIUM PANTOTHENATE\CYANOCOBALAMIN\NIACINAMIDE\PYRIDOXINE HYDROCHLORIDE\RIBOFLAVIN\THIAMINE MONONITRATE
     Indication: RENAL FAILURE CHRONIC
     Dosage: 3 DF (10 MG)
     Route: 048
     Dates: start: 2011
  24. OXIMAX [Suspect]
     Active Substance: MOMETASONE FUROATE
     Indication: CHRONIC OBSTRUCTIVE PULMONARY DISEASE
     Dosage: 1 DF (400 MG), RESPIRATORY

REACTIONS (4)
  - Hypertension [None]
  - Haemodialysis [None]
  - Pneumonia [None]
  - Off label use [None]

NARRATIVE: CASE EVENT DATE: 201309
